FAERS Safety Report 25258047 (Version 3)
Quarter: 2025Q2

REPORT INFORMATION
  Report Type: Spontaneous
  Country: US (occurrence: US)
  Receive Date: 20250501
  Receipt Date: 20250516
  Transmission Date: 20250716
  Serious: No
  Sender: ABBVIE
  Company Number: US-ABBVIE-6256868

PATIENT
  Age: 72 Year
  Sex: Male

DRUGS (2)
  1. PRED FORTE [Suspect]
     Active Substance: PREDNISOLONE ACETATE
     Indication: Eye discharge
     Dosage: 1 DROP ON EACH EYE?END DATE:2025
     Route: 047
     Dates: start: 20250418
  2. PRED FORTE [Suspect]
     Active Substance: PREDNISOLONE ACETATE
     Dosage: 1 DROP ON EACH EYE
     Route: 047
     Dates: start: 2025

REACTIONS (4)
  - Burning sensation [Recovered/Resolved with Sequelae]
  - Ocular discomfort [Recovered/Resolved with Sequelae]
  - Off label use [Unknown]
  - Product quality issue [Unknown]

NARRATIVE: CASE EVENT DATE: 20250101
